FAERS Safety Report 25019584 (Version 1)
Quarter: 2025Q1

REPORT INFORMATION
  Report Type: Spontaneous
  Country: US (occurrence: US)
  Receive Date: 20250227
  Receipt Date: 20250227
  Transmission Date: 20250408
  Serious: Yes (Hospitalization, Other)
  Sender: BRISTOL-MYERS SQUIBB COMPANY
  Company Number: US-BRISTOL-MYERS SQUIBB COMPANY-2025-025119

PATIENT
  Age: 78 Year
  Sex: Male
  Weight: 97.3 kg

DRUGS (1)
  1. REVLIMID [Suspect]
     Active Substance: LENALIDOMIDE
     Indication: Plasma cell myeloma
     Dosage: FREQ: DAILY FOR 21 DAYS AND 7 DAYS OFF
     Route: 048
     Dates: start: 20241127

REACTIONS (2)
  - Gastrointestinal obstruction [Unknown]
  - Urinary tract obstruction [Unknown]
